FAERS Safety Report 24983637 (Version 1)
Quarter: 2025Q1

REPORT INFORMATION
  Report Type: Spontaneous
  Country: BE (occurrence: BE)
  Receive Date: 20250219
  Receipt Date: 20250219
  Transmission Date: 20250408
  Serious: Yes (Other)
  Sender: NOVARTIS
  Company Number: BE-002147023-NVSC2025BE026404

PATIENT
  Sex: Male

DRUGS (4)
  1. BEOVU [Suspect]
     Active Substance: BROLUCIZUMAB-DBLL
     Indication: Product used for unknown indication
     Route: 031
     Dates: start: 202204
  2. BEOVU [Suspect]
     Active Substance: BROLUCIZUMAB-DBLL
     Route: 031
     Dates: start: 20220912, end: 20231106
  3. BEOVU [Suspect]
     Active Substance: BROLUCIZUMAB-DBLL
     Route: 031
     Dates: end: 20240304
  4. LUCENTIS [Suspect]
     Active Substance: RANIBIZUMAB
     Indication: Neovascularisation
     Route: 031
     Dates: start: 202103, end: 202206

REACTIONS (5)
  - Haemorrhage [Recovering/Resolving]
  - Vitreous haemorrhage [Recovering/Resolving]
  - Disease recurrence [Unknown]
  - Neovascularisation [Unknown]
  - Serositis [Recovering/Resolving]

NARRATIVE: CASE EVENT DATE: 20220501
